FAERS Safety Report 10070205 (Version 2)
Quarter: 2014Q2

REPORT INFORMATION
  Report Type: Spontaneous
  Country: AU (occurrence: None)
  Receive Date: 20140408
  Receipt Date: 20140423
  Transmission Date: 20141212
  Serious: Yes (Life-Threatening, Hospitalization, Other)
  Sender: FDA-Public Use
  Company Number: ADR-2014-00559

PATIENT
  Sex: Male

DRUGS (1)
  1. BACLOFEN [Suspect]

REACTIONS (5)
  - Treatment noncompliance [None]
  - Dystonia [None]
  - Drug withdrawal syndrome [None]
  - Rhabdomyolysis [None]
  - Hyperhidrosis [None]
